FAERS Safety Report 12659584 (Version 1)
Quarter: 2016Q3

REPORT INFORMATION
  Report Type: Spontaneous
  Country: FR (occurrence: FR)
  Receive Date: 20160817
  Receipt Date: 20160817
  Transmission Date: 20161109
  Serious: Yes (Death, Other)
  Sender: FDA-Public Use
  Company Number: FR-PFIZER INC-2016382657

PATIENT
  Age: 51 Year
  Sex: Female

DRUGS (17)
  1. PACLITAXEL. [Suspect]
     Active Substance: PACLITAXEL
     Dosage: 150 MG, CYCLIC
     Route: 042
     Dates: start: 20160725
  2. SOLU-MEDROL [Suspect]
     Active Substance: METHYLPREDNISOLONE SODIUM SUCCINATE
     Dosage: 40 MG, CYCLIC
     Route: 042
     Dates: start: 20160711
  3. SOLU-MEDROL [Suspect]
     Active Substance: METHYLPREDNISOLONE SODIUM SUCCINATE
     Dosage: 40 MG, CYCLIC
     Route: 042
     Dates: start: 20160725
  4. AZANTAC [Suspect]
     Active Substance: RANITIDINE HYDROCHLORIDE
     Dosage: 50 MG, CYCLIC
     Route: 042
     Dates: start: 20160718
  5. AZANTAC [Suspect]
     Active Substance: RANITIDINE HYDROCHLORIDE
     Dosage: 50 MG, CYCLIC
     Route: 042
     Dates: start: 20160725
  6. POLARAMINE [Suspect]
     Active Substance: DEXCHLORPHENIRAMINE MALEATE
     Dosage: 5 MG, CYCLIC
     Route: 042
     Dates: start: 20160725
  7. PACLITAXEL. [Suspect]
     Active Substance: PACLITAXEL
     Dosage: UNK
     Route: 042
     Dates: start: 20160718
  8. KYTRIL [Suspect]
     Active Substance: GRANISETRON HYDROCHLORIDE
     Dosage: 3 MG, CYCLIC
     Route: 042
     Dates: start: 20160725
  9. CARBOPLATIN. [Concomitant]
     Active Substance: CARBOPLATIN
     Dosage: 530 MG, CYCLIC
     Dates: start: 20160711
  10. AZANTAC [Suspect]
     Active Substance: RANITIDINE HYDROCHLORIDE
     Dosage: 50 MG, CYCLIC
     Route: 042
     Dates: start: 20160711
  11. KYTRIL [Suspect]
     Active Substance: GRANISETRON HYDROCHLORIDE
     Dosage: 3 MG, CYCLIC
     Route: 042
     Dates: start: 20160718
  12. LOPERAMIDE [Suspect]
     Active Substance: LOPERAMIDE
     Indication: PROPHYLAXIS AGAINST DIARRHOEA
     Dosage: 2 MG, DAILY
     Dates: start: 20160601
  13. PACLITAXEL. [Suspect]
     Active Substance: PACLITAXEL
     Indication: OVARIAN CANCER
     Dosage: 150 (UNITS NOT PROVIDED)
     Route: 042
     Dates: start: 20160711
  14. SOLU-MEDROL [Suspect]
     Active Substance: METHYLPREDNISOLONE SODIUM SUCCINATE
     Dosage: 40 MG, CYCLIC
     Route: 042
     Dates: start: 20160718
  15. POLARAMINE [Suspect]
     Active Substance: DEXCHLORPHENIRAMINE MALEATE
     Dosage: 5 MG, CYCLIC
     Route: 042
     Dates: start: 20160718
  16. POLARAMINE [Suspect]
     Active Substance: DEXCHLORPHENIRAMINE MALEATE
     Indication: ANTIALLERGIC THERAPY
     Dosage: 5 MG, CYCLIC
     Route: 042
     Dates: start: 20160711
  17. KYTRIL [Suspect]
     Active Substance: GRANISETRON HYDROCHLORIDE
     Indication: PROPHYLAXIS OF NAUSEA AND VOMITING
     Dosage: 3 MG, CYCLIC
     Route: 042
     Dates: start: 20160711

REACTIONS (2)
  - Sudden death [Fatal]
  - Syncope [Unknown]

NARRATIVE: CASE EVENT DATE: 20160724
